FAERS Safety Report 5136992-5 (Version None)
Quarter: 2006Q4

REPORT INFORMATION
  Report Type: 
  Country: None (occurrence: None)
  Receive Date: 20061030
  Receipt Date: 20061019
  Transmission Date: 20070319
  Serious: Yes (Other)
  Sender: FDA-Public Use
  Company Number: US-JNJFOC-20061004351

PATIENT
  Sex: Female

DRUGS (8)
  1. INFLIXIMAB [Suspect]
     Indication: RHEUMATOID ARTHRITIS
     Route: 042
  2. HUMIRA [Concomitant]
  3. ARAVA [Concomitant]
  4. PREDNISONE TAB [Concomitant]
  5. PROPOXY [Concomitant]
  6. CALICUM [Concomitant]
  7. LORTAB [Concomitant]
  8. INDERAL [Concomitant]

REACTIONS (1)
  - BASAL CELL CARCINOMA [None]
